FAERS Safety Report 24449151 (Version 2)
Quarter: 2024Q4

REPORT INFORMATION
  Report Type: Report from Study
  Country: US (occurrence: US)
  Receive Date: 20241017
  Receipt Date: 20241025
  Transmission Date: 20250114
  Serious: Yes (Other)
  Sender: ABBVIE
  Company Number: US-ABBVIE-5963599

PATIENT
  Age: 62 Year
  Sex: Female
  Weight: 56.699 kg

DRUGS (6)
  1. SKYRIZI [Suspect]
     Active Substance: RISANKIZUMAB-RZAA
     Indication: Psoriasis
     Dosage: FIRST ADMIN DATE: 2020 OR 2021?LAST ADMIN DATE: 2022?FORM STRENGTH: 15 MG
     Route: 058
  2. SKYRIZI [Suspect]
     Active Substance: RISANKIZUMAB-RZAA
     Dosage: FORM STRENGTH: 150 MG
     Route: 058
     Dates: start: 202307
  3. ADK10 [Concomitant]
     Indication: Vitamin supplementation
  4. DIM [Concomitant]
     Indication: Supplementation therapy
  5. IODINE [Concomitant]
     Active Substance: IODINE
     Indication: Supplementation therapy
  6. BIOTEARS [Concomitant]
     Indication: Product used for unknown indication

REACTIONS (2)
  - Cataract [Recovering/Resolving]
  - Cataract [Unknown]

NARRATIVE: CASE EVENT DATE: 20241011
